FAERS Safety Report 11223396 (Version 1)
Quarter: 2015Q2

REPORT INFORMATION
  Report Type: Spontaneous
  Country: DK (occurrence: DK)
  Receive Date: 20150627
  Receipt Date: 20150627
  Transmission Date: 20150821
  Serious: Yes (Hospitalization, Disabling)
  Sender: FDA-Public Use
  Company Number: DK-TEVA-572173ISR

PATIENT
  Age: 68 Year
  Sex: Female

DRUGS (1)
  1. ESCITALOPRAM [Suspect]
     Active Substance: ESCITALOPRAM OXALATE
     Indication: DEPRESSION
     Dosage: 10 MILLIGRAM DAILY;
     Route: 048
     Dates: start: 20150529, end: 20150529

REACTIONS (4)
  - Hypoaesthesia [Not Recovered/Not Resolved]
  - Fall [Not Recovered/Not Resolved]
  - Hemiparesis [Not Recovered/Not Resolved]
  - Cerebrovascular accident [Not Recovered/Not Resolved]

NARRATIVE: CASE EVENT DATE: 20150529
